FAERS Safety Report 24094891 (Version 1)
Quarter: 2024Q3

REPORT INFORMATION
  Report Type: Spontaneous
  Country: FR (occurrence: FR)
  Receive Date: 20240716
  Receipt Date: 20240716
  Transmission Date: 20241017
  Serious: Yes (Hospitalization)
  Sender: SANDOZ
  Company Number: None

PATIENT
  Age: 76 Year
  Sex: Male
  Weight: 76 kg

DRUGS (6)
  1. FLUOROURACIL [Suspect]
     Active Substance: FLUOROURACIL
     Dosage: 3600 MG
     Route: 042
     Dates: start: 20240603, end: 20240604
  2. FLUOROURACIL [Suspect]
     Active Substance: FLUOROURACIL
     Indication: Squamous cell carcinoma of the tongue
     Dosage: 4250 MG
     Route: 042
     Dates: start: 20240520, end: 20240522
  3. ONDANSETRON [Suspect]
     Active Substance: ONDANSETRON
     Indication: Squamous cell carcinoma of the tongue
     Dosage: 8 MG
     Route: 042
     Dates: start: 20240603, end: 20240603
  4. ONDANSETRON [Suspect]
     Active Substance: ONDANSETRON
     Dosage: 8 MG
     Route: 042
     Dates: start: 20240520, end: 20240520
  5. OXALIPLATIN [Suspect]
     Active Substance: OXALIPLATIN
     Indication: Squamous cell carcinoma of the tongue
     Dosage: 150 MG
     Route: 042
     Dates: start: 20240603, end: 20240603
  6. OXALIPLATIN [Suspect]
     Active Substance: OXALIPLATIN
     Dosage: 150 MG
     Route: 042
     Dates: start: 20240520, end: 20240520

REACTIONS (1)
  - Encephalopathy [Not Recovered/Not Resolved]

NARRATIVE: CASE EVENT DATE: 20240604
